FAERS Safety Report 9536300 (Version 1)
Quarter: 2013Q2

REPORT INFORMATION
  Report Type: Spontaneous
  Country: US (occurrence: None)
  Receive Date: 20130507
  Receipt Date: 20130507
  Transmission Date: 20140414
  Serious: Yes (Other)
  Sender: FDA-Public Use
  Company Number: PHEH2013US004935

PATIENT
  Age: 60 Year
  Sex: Female

DRUGS (3)
  1. AFINITOR (RAD) TABLET, 10MG [Suspect]
     Indication: BREAST CANCER
     Route: 048
     Dates: start: 20130106
  2. EXEMESTANE (EXEMESTANE) [Concomitant]
  3. FULVESTRANT (FULVESTRANT) [Concomitant]

REACTIONS (2)
  - Hepatic enzyme increased [None]
  - Nausea [None]
